FAERS Safety Report 5491924-5 (Version None)
Quarter: 2007Q4

REPORT INFORMATION
  Report Type: 
  Country: None (occurrence: None)
  Receive Date: 20071022
  Receipt Date: 20071017
  Transmission Date: 20080405
  Serious: Yes (Other)
  Sender: FDA-Public Use
  Company Number: B0492092A

PATIENT
  Sex: Female

DRUGS (1)
  1. NIQUITIN CQ GUM 2MG [Suspect]
     Dosage: 15GUM PER DAY
     Route: 002

REACTIONS (2)
  - BLOOD PRESSURE INCREASED [None]
  - DEPENDENCE [None]
